FAERS Safety Report 9246547 (Version 3)
Quarter: 2013Q2

REPORT INFORMATION
  Report Type: Spontaneous
  Country: JP (occurrence: JP)
  Receive Date: 20130422
  Receipt Date: 20130507
  Transmission Date: 20140414
  Serious: Yes (Life-Threatening, Hospitalization)
  Sender: FDA-Public Use
  Company Number: JP-EISAI INC-E2020-12232-SPO-JP

PATIENT
  Sex: Male

DRUGS (10)
  1. BEPRICOR [Concomitant]
     Dosage: 100 MG DAILY
     Route: 048
  2. PRAVASTAN [Concomitant]
     Dosage: 10 MG DAILY
     Route: 048
  3. RENIVACE [Concomitant]
     Dosage: 1.25 MG DAILY
     Route: 048
  4. ARTIST [Concomitant]
     Dosage: 5 MG
     Route: 048
  5. LANIRAPID [Concomitant]
     Dosage: 0.1 MG DAILY
     Route: 048
  6. WARFARIN [Concomitant]
     Dosage: 3 MG DAILY
     Route: 048
  7. CEROCRAL [Concomitant]
     Dosage: 60 MG DAILY
     Route: 048
  8. SEDIEL [Concomitant]
     Dosage: 30 MG DAILY
     Route: 048
  9. TETRAMIDE [Concomitant]
     Dosage: 20 MG DAILY
     Route: 048
  10. ARICEPT [Suspect]
     Indication: DEMENTIA ALZHEIMER^S TYPE
     Route: 048
     Dates: start: 20120401, end: 20130406

REACTIONS (1)
  - Cardiac arrest [Recovered/Resolved]
